FAERS Safety Report 16284038 (Version 1)
Quarter: 2019Q2

REPORT INFORMATION
  Report Type: Spontaneous
  Country: FR (occurrence: FR)
  Receive Date: 20190508
  Receipt Date: 20190508
  Transmission Date: 20190711
  Serious: Yes (Life-Threatening, Hospitalization)
  Sender: FDA-Public Use
  Company Number: PHHY2019FR103527

PATIENT
  Age: 68 Year
  Sex: Male
  Weight: 112 kg

DRUGS (3)
  1. DESLORATADINE. [Suspect]
     Active Substance: DESLORATADINE
     Indication: RHINITIS
     Dosage: 5 MG, UNK
     Route: 048
  2. IBUPROFEN. [Suspect]
     Active Substance: IBUPROFEN
     Indication: RHINITIS
     Dosage: 400 MG, UNK
     Route: 048
  3. ATRIVO STERI NEB [Suspect]
     Active Substance: IPRATROPIUM BROMIDE
     Indication: RHINITIS
     Dosage: UNK
     Route: 045

REACTIONS (1)
  - Hepatitis fulminant [Not Recovered/Not Resolved]

NARRATIVE: CASE EVENT DATE: 20190330
